FAERS Safety Report 15459767 (Version 1)
Quarter: 2018Q4

REPORT INFORMATION
  Report Type: Spontaneous
  Country: US (occurrence: US)
  Receive Date: 20181001
  Receipt Date: 20181001
  Transmission Date: 20190204
  Serious: Yes (Hospitalization)
  Sender: FDA-Public Use
  Company Number: None

PATIENT
  Sex: Female

DRUGS (21)
  1. LEVOFLOXACIN 250MG [Concomitant]
     Active Substance: LEVOFLOXACIN
  2. LIDO/PRILOCN CRE 2.5-2.5% [Concomitant]
  3. REPAGLINIDE 0.5MG [Concomitant]
     Active Substance: REPAGLINIDE
  4. CARVEDILOL 3.125MG [Concomitant]
  5. FOLIC ACID 1MG [Concomitant]
  6. TACROLIMUS 0.5MG [Concomitant]
     Active Substance: TACROLIMUS
     Dates: start: 20131116
  7. FOLBIC [Concomitant]
     Active Substance: CYANOCOBALAMIN\FOLIC ACID\PYRIDOXINE
  8. OMEPRAZOLE 40MG [Concomitant]
     Active Substance: OMEPRAZOLE
  9. CRESTOR [Concomitant]
     Active Substance: ROSUVASTATIN CALCIUM
  10. OMEPRAZOLE 40MG [Concomitant]
     Active Substance: OMEPRAZOLE
  11. TEKTURNA 150MG [Concomitant]
  12. MYCOPHENOLIC [Suspect]
     Active Substance: MYCOPHENOLIC ACID
     Indication: RENAL TRANSPLANT
     Route: 048
     Dates: start: 20140331
  13. TACROLIMUS. [Suspect]
     Active Substance: TACROLIMUS
     Indication: RENAL TRANSPLANT
     Route: 048
     Dates: start: 20131116
  14. NITROFURANTN 100MG [Concomitant]
  15. REPAGLINIDE 0.5MG [Concomitant]
     Active Substance: REPAGLINIDE
  16. LEVOTHYROXIN 150MCG [Concomitant]
  17. SEVELAMER 800MG [Concomitant]
  18. CLOPIDOGREL [Concomitant]
     Active Substance: CLOPIDOGREL BISULFATE
  19. ROSUVASTATIN 10MG [Concomitant]
     Active Substance: ROSUVASTATIN
  20. TEMAZEPAM 15MG [Concomitant]
  21. ZOLPIDEM [Concomitant]
     Active Substance: ZOLPIDEM\ZOLPIDEM TARTRATE

REACTIONS (1)
  - Limb operation [None]
